FAERS Safety Report 22303427 (Version 8)
Quarter: 2023Q2

REPORT INFORMATION
  Report Type: Other
  Country: GB (occurrence: None)
  Receive Date: 20230510
  Receipt Date: 20230622
  Transmission Date: 20230722
  Serious: Yes (Death, Life-Threatening, Hospitalization, Other)
  Sender: FDA-Public Use
  Company Number: GB-ROCHE-3346077

PATIENT
  Age: 71 Year
  Sex: Male
  Weight: 109 kg

DRUGS (26)
  1. ATEZOLIZUMAB [Suspect]
     Active Substance: ATEZOLIZUMAB
     Indication: Lung squamous cell carcinoma metastatic
     Dosage: START AND END DATE OF MOST RECENT DOSE OF STUDY DRUG PRIOR TO AE AND SAE AT 12/APR/2023 AT 1200 MG
     Route: 041
     Dates: start: 20220803
  2. PREDNISOLONE [Concomitant]
     Active Substance: PREDNISOLONE
     Dates: start: 20221109, end: 20230425
  3. PREDNISOLONE [Concomitant]
     Active Substance: PREDNISOLONE
     Dates: start: 20230425
  4. PREDNISOLONE [Concomitant]
     Active Substance: PREDNISOLONE
     Dates: start: 20230514, end: 20230517
  5. PREDNISOLONE [Concomitant]
     Active Substance: PREDNISOLONE
     Dates: start: 20230518, end: 20230522
  6. PREDNISOLONE [Concomitant]
     Active Substance: PREDNISOLONE
     Dates: start: 20230523, end: 20230527
  7. EDOXABAN [Concomitant]
     Active Substance: EDOXABAN
     Dates: start: 20221109
  8. LOPERAMIDE [Concomitant]
     Active Substance: LOPERAMIDE
     Dates: start: 20221130
  9. ALBUMIN HUMAN [Concomitant]
     Active Substance: ALBUMIN HUMAN
     Dates: start: 20230516, end: 20230516
  10. ALBUMIN HUMAN [Concomitant]
     Active Substance: ALBUMIN HUMAN
     Dates: start: 20230519, end: 20230519
  11. ALBUMIN HUMAN [Concomitant]
     Active Substance: ALBUMIN HUMAN
     Dates: start: 20230529, end: 20230529
  12. AMOXICILLIN\CLAVULANATE POTASSIUM [Concomitant]
     Active Substance: AMOXICILLIN\CLAVULANATE POTASSIUM
     Dates: start: 20230528, end: 20230528
  13. OMEPRAZOLE [Concomitant]
     Active Substance: OMEPRAZOLE
     Route: 042
     Dates: start: 20230505, end: 20230514
  14. OMEPRAZOLE [Concomitant]
     Active Substance: OMEPRAZOLE
     Dates: start: 20230525, end: 20230527
  15. DALTEPARIN [Concomitant]
     Active Substance: DALTEPARIN
     Indication: Prophylaxis
     Dates: start: 20230508, end: 20230508
  16. DALTEPARIN [Concomitant]
     Active Substance: DALTEPARIN
     Dates: start: 20230518, end: 20230525
  17. FENTANYL [Concomitant]
     Active Substance: FENTANYL
     Dates: start: 20230509, end: 20230509
  18. POLYETHYLENE GLYCOLS [Concomitant]
     Active Substance: POLYETHYLENE GLYCOLS
     Indication: Prophylaxis
     Dates: start: 20230509, end: 20230514
  19. MORPHINE [Concomitant]
     Active Substance: MORPHINE
     Dates: start: 20230510, end: 20230511
  20. ACETAMINOPHEN [Concomitant]
     Active Substance: ACETAMINOPHEN
     Dates: start: 20230510
  21. TRAMADOL [Concomitant]
     Active Substance: TRAMADOL
     Dates: start: 20230511, end: 20230526
  22. GENTAMICIN [Concomitant]
     Active Substance: GENTAMICIN
     Dates: start: 20230518, end: 20230518
  23. NYSTATIN [Concomitant]
     Active Substance: NYSTATIN
     Dates: start: 20230515, end: 20230601
  24. OXYCODONE [Concomitant]
     Active Substance: OXYCODONE
     Dates: start: 20230526
  25. MIDAZOLAM [Concomitant]
     Active Substance: MIDAZOLAM
  26. HALOPERIDOL [Concomitant]
     Active Substance: HALOPERIDOL
     Dates: start: 20230602

REACTIONS (6)
  - Sepsis [Not Recovered/Not Resolved]
  - Cholangiocarcinoma [Fatal]
  - Pancreatitis [Not Recovered/Not Resolved]
  - Biliary obstruction [Not Recovered/Not Resolved]
  - Pneumonia aspiration [Not Recovered/Not Resolved]
  - Hypoalbuminaemia [Not Recovered/Not Resolved]

NARRATIVE: CASE EVENT DATE: 20230425
